FAERS Safety Report 9910841 (Version 2)
Quarter: 2014Q1

REPORT INFORMATION
  Report Type: Spontaneous
  Country: US (occurrence: US)
  Receive Date: 20140219
  Receipt Date: 20140317
  Transmission Date: 20141002
  Serious: Yes (Hospitalization)
  Sender: FDA-Public Use
  Company Number: US-GILEAD-2014-0094644

PATIENT
  Sex: Female

DRUGS (6)
  1. SOVALDI [Suspect]
     Indication: CHRONIC HEPATITIS C
     Dosage: UNK
     Route: 065
  2. RIBAVIRIN [Suspect]
     Indication: CHRONIC HEPATITIS C
     Dosage: UNK
     Route: 065
  3. RIBAVIRIN [Suspect]
     Dosage: 600 MG, QD
     Route: 065
  4. RIBAVIRIN [Suspect]
     Dosage: 800 MG, UNK
     Route: 065
  5. PEGINTERFERON [Concomitant]
  6. METHADONE [Concomitant]

REACTIONS (1)
  - Haemoglobin decreased [Recovered/Resolved]
